FAERS Safety Report 9642111 (Version 2)
Quarter: 2013Q4

REPORT INFORMATION
  Report Type: Report from Study
  Country: FR (occurrence: FR)
  Receive Date: 20131023
  Receipt Date: 20131125
  Transmission Date: 20140711
  Serious: Yes (Hospitalization)
  Sender: FDA-Public Use
  Company Number: FR-EXELIXIS-XL18413003478

PATIENT
  Age: 77 Year
  Sex: Male
  Weight: 78 kg

DRUGS (21)
  1. XL184 [Suspect]
     Indication: PROSTATE CANCER
     Dosage: 60 MG, QD
     Route: 048
     Dates: start: 20130222, end: 20130317
  2. XL184 [Suspect]
     Dosage: 40 MG, QD
     Route: 048
     Dates: start: 20130405, end: 20130425
  3. XL184 [Suspect]
     Dosage: 20 MG, QD
     Route: 048
     Dates: start: 20130524, end: 20130711
  4. XL184 [Suspect]
     Dosage: 20 MG, QD
     Route: 048
     Dates: start: 20130716, end: 20131008
  5. XL184 [Suspect]
     Indication: PROSTATE CANCER
     Dosage: 5 MG, BID
     Route: 048
     Dates: start: 20130222, end: 20130317
  6. XL184 [Suspect]
     Dosage: 5 MG, BID
     Route: 048
     Dates: start: 20130405, end: 20130425
  7. XL184 [Suspect]
     Dosage: 5 MG, BID
     Route: 048
     Dates: start: 20130524, end: 20130711
  8. XL184 [Suspect]
     Dosage: 5 MG, BID
     Route: 048
     Dates: start: 20130716, end: 20131008
  9. IMODIUM [Concomitant]
  10. DEXERYL [Concomitant]
  11. MOVICOL [Concomitant]
  12. DECAPEPTYL [Concomitant]
  13. VESICARE [Concomitant]
  14. OLMESARTAN MEDOXOMIL [Concomitant]
  15. GAVISCON [Concomitant]
  16. INEXIUM [Concomitant]
  17. ATACAND [Concomitant]
  18. CLINUTREN [Concomitant]
  19. CETORNAN [Concomitant]
  20. MAGNE B6 [Concomitant]
  21. AMLODIPINE W/OLMESARTAN [Concomitant]

REACTIONS (3)
  - Confusional state [Recovered/Resolved]
  - Aphasia [Recovered/Resolved]
  - Malaise [Recovered/Resolved]
